FAERS Safety Report 7505307-7 (Version None)
Quarter: 2011Q2

REPORT INFORMATION
  Report Type: 
  Country: None (occurrence: None)
  Receive Date: 20110526
  Receipt Date: 20110519
  Transmission Date: 20111010
  Serious: Yes (Other)
  Sender: FDA-Public Use
  Company Number: JP-AMGEN-JPNSP2011026494

PATIENT
  Age: 75 Year
  Sex: Female

DRUGS (1)
  1. ENBREL [Suspect]
     Indication: RHEUMATOID ARTHRITIS
     Dosage: 50 MG, WEEKLY
     Route: 058
     Dates: end: 20110412

REACTIONS (6)
  - RHEUMATOID ARTHRITIS [None]
  - EAR OPERATION [None]
  - MELAENA [None]
  - ANAEMIA [None]
  - OEDEMA PERIPHERAL [None]
  - IMPAIRED HEALING [None]
